FAERS Safety Report 21023405 (Version 2)
Quarter: 2022Q3

REPORT INFORMATION
  Report Type: Spontaneous
  Country: US (occurrence: US)
  Receive Date: 20220629
  Receipt Date: 20220708
  Transmission Date: 20221027
  Serious: No
  Sender: FDA-Public Use
  Company Number: US-SANOFI-01162736

PATIENT
  Age: 85 Year
  Sex: Female

DRUGS (1)
  1. LANTUS SOLOSTAR [Suspect]
     Active Substance: INSULIN GLARGINE
     Indication: Type 2 diabetes mellitus
     Dosage: 34 IU, QD

REACTIONS (5)
  - Speech disorder [Recovering/Resolving]
  - Fatigue [Recovering/Resolving]
  - Blood glucose decreased [Recovering/Resolving]
  - Wrong technique in device usage process [Unknown]
  - Product dose omission in error [Unknown]
